FAERS Safety Report 13157868 (Version 1)
Quarter: 2017Q1

REPORT INFORMATION
  Report Type: Spontaneous
  Country: JP (occurrence: JP)
  Receive Date: 20170127
  Receipt Date: 20170127
  Transmission Date: 20170428
  Serious: Yes (Hospitalization)
  Sender: FDA-Public Use
  Company Number: JP-AMGEN-JPNSP2017013666

PATIENT
  Age: 47 Year
  Sex: Male

DRUGS (2)
  1. REGPARA [Suspect]
     Active Substance: CINACALCET HYDROCHLORIDE
     Indication: PRODUCT USED FOR UNKNOWN INDICATION
     Dosage: 25 MG, QD
     Route: 048
     Dates: start: 20160419, end: 20160627
  2. REGPARA [Suspect]
     Active Substance: CINACALCET HYDROCHLORIDE
     Dosage: 25 MG, QD
     Route: 048
     Dates: start: 20160705, end: 20161114

REACTIONS (6)
  - Excoriation [Recovered/Resolved]
  - Removal of ambulatory peritoneal catheter [Recovered/Resolved]
  - Diarrhoea [Recovered/Resolved]
  - Vitreous haemorrhage [Recovered/Resolved]
  - Intraocular lens implant [Recovered/Resolved]
  - Device breakage [Recovered/Resolved]

NARRATIVE: CASE EVENT DATE: 20160505
